FAERS Safety Report 8853900 (Version 3)
Quarter: 2012Q4

REPORT INFORMATION
  Report Type: Report from Study
  Country: DE (occurrence: DE)
  Receive Date: 20121022
  Receipt Date: 20121129
  Transmission Date: 20130627
  Serious: Yes (Hospitalization)
  Sender: FDA-Public Use
  Company Number: DE-MPIJNJ-2012-07078

PATIENT

DRUGS (2)
  1. VELCADE [Suspect]
     Indication: MULTIPLE MYELOMA
     Dosage: UNK
     Route: 065
     Dates: start: 20120612, end: 20120927
  2. PAMIDRONATE [Concomitant]
     Dosage: UNK
     Dates: start: 20111014

REACTIONS (1)
  - Acute coronary syndrome [Not Recovered/Not Resolved]
